FAERS Safety Report 21231285 (Version 5)
Quarter: 2022Q4

REPORT INFORMATION
  Report Type: Spontaneous
  Country: US (occurrence: US)
  Receive Date: 20220819
  Receipt Date: 20221212
  Transmission Date: 20230113
  Serious: No
  Sender: FDA-Public Use
  Company Number: US-SA-SAC20220629002176

PATIENT
  Age: 71 Year
  Sex: Female
  Weight: 56.245 kg

DRUGS (15)
  1. DUPIXENT [Suspect]
     Active Substance: DUPILUMAB
     Indication: Dermatitis atopic
     Dosage: 600 MG, 1X
     Route: 058
     Dates: start: 20220624, end: 20220624
  2. DUPIXENT [Suspect]
     Active Substance: DUPILUMAB
     Dosage: 300 MG, QOW
     Route: 058
  3. ACRIVASTINE [Concomitant]
     Active Substance: ACRIVASTINE
  4. ASPIRIN [Concomitant]
     Active Substance: ASPIRIN
  5. CITRACAL + D3 [Concomitant]
  6. LATANOPROST [Concomitant]
     Active Substance: LATANOPROST
  7. CLOPIDOGREL [Concomitant]
     Active Substance: CLOPIDOGREL BISULFATE
  8. ATORVASTATIN CALCIUM [Concomitant]
     Active Substance: ATORVASTATIN CALCIUM
  9. MUPIROCIN [Concomitant]
     Active Substance: MUPIROCIN
  10. MOMETASONE FUROATE [Concomitant]
     Active Substance: MOMETASONE FUROATE
  11. KETOCONAZOLE [Concomitant]
     Active Substance: KETOCONAZOLE
  12. MULTAQ [Concomitant]
     Active Substance: DRONEDARONE
  13. IPRATROPIUM BROMIDE [Concomitant]
     Active Substance: IPRATROPIUM BROMIDE
  14. VITAMINS NOS [Concomitant]
     Active Substance: VITAMINS
  15. VITAMIN D3 [Concomitant]
     Active Substance: CHOLECALCIFEROL

REACTIONS (18)
  - Injection site pain [Unknown]
  - Weight decreased [Not Recovered/Not Resolved]
  - Upper-airway cough syndrome [Not Recovered/Not Resolved]
  - Dry mouth [Not Recovered/Not Resolved]
  - Dyspnoea [Not Recovered/Not Resolved]
  - Lip disorder [Not Recovered/Not Resolved]
  - Lacrimation increased [Not Recovered/Not Resolved]
  - Injection site rash [Not Recovered/Not Resolved]
  - Injection site mass [Unknown]
  - Pruritus [Not Recovered/Not Resolved]
  - Erythema [Unknown]
  - Alopecia [Unknown]
  - Injection site bruising [Not Recovered/Not Resolved]
  - Injection site reaction [Unknown]
  - Rash erythematous [Unknown]
  - Rash pruritic [Unknown]
  - Rash [Not Recovered/Not Resolved]
  - Therapeutic response decreased [Not Recovered/Not Resolved]

NARRATIVE: CASE EVENT DATE: 20220101
